FAERS Safety Report 20533046 (Version 4)
Quarter: 2022Q2

REPORT INFORMATION
  Report Type: Spontaneous
  Country: US (occurrence: US)
  Receive Date: 20220301
  Receipt Date: 20220412
  Transmission Date: 20220720
  Serious: No
  Sender: FDA-Public Use
  Company Number: US-KARYOPHARM-2022KPT000187

PATIENT

DRUGS (16)
  1. XPOVIO [Suspect]
     Active Substance: SELINEXOR
     Indication: Plasma cell myeloma
     Dosage: 40 MG, WEEKLY
     Route: 048
     Dates: start: 20220207, end: 20220316
  2. AVODART [Concomitant]
     Active Substance: DUTASTERIDE
  3. MIDODRINE [Concomitant]
     Active Substance: MIDODRINE
  4. LEXAPRO [Concomitant]
     Active Substance: ESCITALOPRAM OXALATE
  5. MIRTAZAPINE [Concomitant]
     Active Substance: MIRTAZAPINE
  6. LASIX [Concomitant]
     Active Substance: FUROSEMIDE
  7. LIPITOR [Concomitant]
     Active Substance: ATORVASTATIN CALCIUM
  8. DECADRON [Concomitant]
     Active Substance: DEXAMETHASONE
  9. NINLARO [Concomitant]
     Active Substance: IXAZOMIB CITRATE
     Dosage: 4 MG, WEEKLY
  10. ACYCLOVIR [Concomitant]
     Active Substance: ACYCLOVIR
  11. ELIQUIS [Concomitant]
     Active Substance: APIXABAN
  12. LEVOTHYROXINE [Concomitant]
     Active Substance: LEVOTHYROXINE
  13. BACTRIM [Concomitant]
     Active Substance: SULFAMETHOXAZOLE\TRIMETHOPRIM
  14. ONDANSETRON [Concomitant]
     Active Substance: ONDANSETRON
  15. SENNOSIDES A AND B [Concomitant]
     Active Substance: SENNOSIDES A AND B
  16. RAPAFLO [Concomitant]
     Active Substance: SILODOSIN

REACTIONS (8)
  - Dyspnoea exertional [Unknown]
  - Dizziness postural [Not Recovered/Not Resolved]
  - Wheezing [Unknown]
  - Plasma cell myeloma [Unknown]
  - Diarrhoea [Unknown]
  - Fatigue [Not Recovered/Not Resolved]
  - Nausea [Unknown]
  - Drug ineffective [Unknown]

NARRATIVE: CASE EVENT DATE: 20220201
